FAERS Safety Report 12493624 (Version 1)
Quarter: 2016Q2

REPORT INFORMATION
  Report Type: Spontaneous
  Country: IN (occurrence: IN)
  Receive Date: 20160623
  Receipt Date: 20160623
  Transmission Date: 20160815
  Serious: Yes (Other)
  Sender: FDA-Public Use
  Company Number: IN-VIIV HEALTHCARE LIMITED-IN2016GSK087530

PATIENT
  Age: 47 Year
  Sex: Male

DRUGS (6)
  1. TENOFOVIR DISOPROXIL FUMARATE. [Suspect]
     Active Substance: TENOFOVIR DISOPROXIL FUMARATE
     Indication: HIV INFECTION
     Dosage: UNK
     Route: 065
     Dates: start: 2009
  2. ATAZANAVIR [Suspect]
     Active Substance: ATAZANAVIR
     Indication: HIV INFECTION
     Dosage: UNK
     Route: 065
  3. RITONAVIR. [Suspect]
     Active Substance: RITONAVIR
     Indication: HIV INFECTION
     Dosage: UNK
     Route: 065
  4. EFAVIRENZ [Suspect]
     Active Substance: EFAVIRENZ
     Indication: HIV INFECTION
     Dosage: UNK
     Route: 065
     Dates: start: 2009
  5. LAMIVUDINE. [Suspect]
     Active Substance: LAMIVUDINE
     Indication: HIV INFECTION
     Dosage: UNK
     Route: 065
     Dates: start: 2009
  6. ABACAVIR. [Suspect]
     Active Substance: ABACAVIR
     Indication: HIV INFECTION
     Dosage: UNK
     Route: 065

REACTIONS (15)
  - Immune reconstitution inflammatory syndrome [Unknown]
  - CD4 lymphocytes decreased [Unknown]
  - Pruritus [Unknown]
  - Nodule [Unknown]
  - Kaposi^s sarcoma [Unknown]
  - Pain [Unknown]
  - Skin lesion [Unknown]
  - Erythema elevatum diutinum [Unknown]
  - Dyspnoea [Unknown]
  - Fatigue [Unknown]
  - Rash papular [Unknown]
  - Cutaneous tuberculosis [Unknown]
  - Fibrosis [Unknown]
  - Weight decreased [Unknown]
  - Cough [Unknown]
